FAERS Safety Report 8830956 (Version 2)
Quarter: 2012Q4

REPORT INFORMATION
  Report Type: 
  Country: DE (occurrence: DE)
  Receive Date: 20121008
  Receipt Date: 20121024
  Transmission Date: 20130627
  Serious: Yes (Hospitalization, Other)
  Sender: FDA-Public Use
  Company Number: DE-PFIZER INC-2012246410

PATIENT
  Age: 21 Year
  Sex: Female

DRUGS (3)
  1. ATARAX [Suspect]
     Dosage: 25 mg, 10 tablets
     Route: 048
  2. IBUPROFEN [Suspect]
     Dosage: 14 TABLETS, TOTAL AMOUNT 5600MG
     Route: 048
  3. CETIRIZINE [Suspect]
     Dosage: 10 tablets
     Route: 048

REACTIONS (4)
  - Intentional overdose [Unknown]
  - Suicide attempt [Recovered/Resolved]
  - Slow response to stimuli [Recovered/Resolved]
  - Chills [Recovered/Resolved]
